FAERS Safety Report 24617152 (Version 1)
Quarter: 2024Q4

REPORT INFORMATION
  Report Type: Spontaneous
  Country: RU (occurrence: RU)
  Receive Date: 20241114
  Receipt Date: 20241114
  Transmission Date: 20250114
  Serious: Yes (Death, Other)
  Sender: JOHNSON AND JOHNSON
  Company Number: RU-JNJFOC-20241128712

PATIENT
  Age: 76 Year
  Sex: Male

DRUGS (2)
  1. ERLEADA [Suspect]
     Active Substance: APALUTAMIDE
     Indication: Prostate cancer
     Route: 065
     Dates: start: 202211, end: 202310
  2. ENZALUTAMIDE [Suspect]
     Active Substance: ENZALUTAMIDE
     Indication: Product used for unknown indication
     Route: 065
     Dates: start: 202403

REACTIONS (2)
  - Death [Fatal]
  - Prostate cancer [Unknown]
